FAERS Safety Report 8780604 (Version 1)
Quarter: 2012Q4

REPORT INFORMATION
  Report Type: 
  Country: US (occurrence: US)
  Receive Date: 20120913
  Receipt Date: 20120913
  Transmission Date: 20130627
  Serious: No
  Sender: FDA-Public Use
  Company Number: US-VERTEX PHARMACEUTICAL INC.-AE-2012-008515

PATIENT
  Sex: Male
  Weight: 68.18 kg

DRUGS (8)
  1. INCIVEK [Suspect]
     Indication: HEPATITIS C
     Route: 048
     Dates: start: 20120117
  2. PEGASYS [Concomitant]
     Indication: HEPATITIS C
     Route: 058
     Dates: start: 20120117
  3. RIBASPHERE [Concomitant]
     Indication: HEPATITIS C
     Route: 048
     Dates: start: 20120117
  4. PAXIL CR [Concomitant]
     Route: 048
  5. VITAMIN D2 [Concomitant]
  6. PROCRIT [Concomitant]
  7. NEOMYCIN/POLYMIXIN/HYDROCORTISONE [Concomitant]
  8. NYSTATIN/TRIAMCINOLONE [Concomitant]

REACTIONS (2)
  - Hypersensitivity [Unknown]
  - Rash [Unknown]
